FAERS Safety Report 4823714-8 (Version None)
Quarter: 2005Q4

REPORT INFORMATION
  Report Type: 
  Country: None (occurrence: None)
  Receive Date: 20051109
  Receipt Date: 20050824
  Transmission Date: 20060501
  Serious: Yes (Death)
  Sender: FDA-Public Use
  Company Number: US-ROCHE-415472

PATIENT
  Age: 47 Year
  Sex: Male
  Weight: 78 kg

DRUGS (5)
  1. PEGASYS [Suspect]
     Indication: HEPATITIS C
     Route: 058
     Dates: start: 20041005, end: 20050504
  2. COPEGUS [Suspect]
     Indication: HEPATITIS C
     Route: 048
     Dates: start: 20041005, end: 20050504
  3. LUPRON [Concomitant]
     Indication: PROSTATE CANCER
     Route: 030
     Dates: start: 20031215, end: 20050504
  4. ZOLOFT [Concomitant]
     Dosage: DOSAGE REGIMEN: EVERY DAY.
     Route: 048
     Dates: start: 20050421, end: 20050504
  5. RESTORIL [Concomitant]
     Indication: INSOMNIA
     Route: 048
     Dates: start: 20041217, end: 20050504

REACTIONS (3)
  - FALL [None]
  - SUBDURAL HAEMORRHAGE [None]
  - SUDDEN DEATH [None]
